FAERS Safety Report 10246206 (Version 1)
Quarter: 2014Q2

REPORT INFORMATION
  Report Type: Spontaneous
  Country: FR (occurrence: FR)
  Receive Date: 20140619
  Receipt Date: 20140619
  Transmission Date: 20141212
  Serious: Yes (Hospitalization)
  Sender: FDA-Public Use
  Company Number: FR-ASTRAZENECA-2014SE44259

PATIENT
  Age: 22980 Day
  Sex: Female

DRUGS (10)
  1. INEXIUM [Suspect]
     Route: 048
     Dates: start: 201405, end: 20140522
  2. NEORAL [Suspect]
     Route: 048
     Dates: start: 20140509
  3. CELLCEPT [Concomitant]
     Dates: start: 20140509
  4. LERCANIDIPINE MYLAN [Concomitant]
     Dates: start: 20140512
  5. KARDEGIC [Concomitant]
     Dates: start: 20140515, end: 20140517
  6. PARACETAMOL [Concomitant]
     Dates: start: 20140514, end: 20140516
  7. STILNOX [Concomitant]
     Dates: start: 20140516, end: 20140517
  8. LOVENOX [Concomitant]
     Dates: start: 20140514, end: 20140517
  9. CORTANCYL [Concomitant]
     Dates: start: 20140513, end: 20140513
  10. METHYLPREDNISOLONE [Concomitant]
     Dates: start: 20140510, end: 20140512

REACTIONS (1)
  - Haemolytic anaemia [Recovering/Resolving]
